FAERS Safety Report 15364490 (Version 1)
Quarter: 2018Q3

REPORT INFORMATION
  Report Type: Spontaneous
  Country: FR (occurrence: FR)
  Receive Date: 20180909
  Receipt Date: 20180909
  Transmission Date: 20181010
  Serious: Yes (Death)
  Sender: FDA-Public Use
  Company Number: PHHY2018FR092480

PATIENT
  Age: 83 Year
  Sex: Male

DRUGS (6)
  1. ACIDE CLAVULANIQUE [Suspect]
     Active Substance: CLAVULANIC ACID
     Indication: POSTOPERATIVE WOUND INFECTION
     Dosage: UNK
     Route: 048
  2. AMOXICILLIN. [Suspect]
     Active Substance: AMOXICILLIN
     Indication: POSTOPERATIVE WOUND INFECTION
     Dosage: UNK
     Route: 048
  3. DALACINE [Suspect]
     Active Substance: CLINDAMYCIN
     Dosage: 1800 MG, QD
     Route: 048
     Dates: start: 20180621
  4. FUCIDINE [Suspect]
     Active Substance: FUSIDIC ACID
     Indication: POSTOPERATIVE WOUND INFECTION
     Dosage: 1500 MG, QD
     Route: 048
     Dates: start: 20180607
  5. FUCIDINE [Suspect]
     Active Substance: FUSIDIC ACID
     Dosage: 1500 MG, QD
     Route: 048
     Dates: start: 20180621
  6. DALACINE [Suspect]
     Active Substance: CLINDAMYCIN
     Indication: POSTOPERATIVE WOUND INFECTION
     Dosage: 1800 MG, QD
     Route: 048
     Dates: start: 20180607

REACTIONS (2)
  - Cholangitis [Fatal]
  - Cholestasis [Fatal]

NARRATIVE: CASE EVENT DATE: 20180622
